FAERS Safety Report 23384951 (Version 2)
Quarter: 2024Q1

REPORT INFORMATION
  Report Type: Report from Study
  Country: US (occurrence: None)
  Receive Date: 20240109
  Receipt Date: 20240221
  Transmission Date: 20240409
  Serious: Yes (Other)
  Sender: FDA-Public Use
  Company Number: 2024A003399

PATIENT
  Age: 706 Month

DRUGS (1)
  1. FARXIGA [Suspect]
     Active Substance: DAPAGLIFLOZIN PROPANEDIOL
     Route: 048

REACTIONS (3)
  - Myocardial infarction [Unknown]
  - Coronary artery occlusion [Unknown]
  - Product label confusion [Unknown]

NARRATIVE: CASE EVENT DATE: 20230801
